FAERS Safety Report 4423998-4 (Version None)
Quarter: 2004Q3

REPORT INFORMATION
  Report Type: 
  Country: None (occurrence: None)
  Receive Date: 20040806
  Receipt Date: 20040716
  Transmission Date: 20050211
  Serious: Yes (Hospitalization)
  Sender: FDA-Public Use
  Company Number: FR_040704448

PATIENT
  Age: 53 Year
  Sex: Female

DRUGS (4)
  1. PROZAC [Suspect]
     Dosage: 20MG/1 DAY
     Dates: start: 20031211, end: 20031228
  2. LEPTICUR (TROPATEPINE HYDROCHLORIDE) [Concomitant]
  3. TERCIAN (CYAMEMAZINE) [Concomitant]
  4. HALDOL [Concomitant]

REACTIONS (16)
  - AREFLEXIA [None]
  - COMA [None]
  - CONFUSIONAL STATE [None]
  - CRANIAL NERVE DISORDER [None]
  - HAEMOGLOBIN DECREASED [None]
  - HYPERTHYROIDISM [None]
  - HYPOTHYROIDISM [None]
  - HYPOTONIA [None]
  - NEUROLEPTIC MALIGNANT SYNDROME [None]
  - NEUROPATHY PERIPHERAL [None]
  - PROTHROMBIN TIME RATIO [None]
  - PUPILS UNEQUAL [None]
  - QUADRIPLEGIA [None]
  - RHABDOMYOLYSIS [None]
  - THROMBOCYTOPENIA [None]
  - URINARY TRACT INFECTION [None]
